FAERS Safety Report 4615973-1 (Version None)
Quarter: 2005Q1

REPORT INFORMATION
  Report Type: 
  Country: None (occurrence: None)
  Receive Date: 20050318
  Receipt Date: 20050308
  Transmission Date: 20050727
  Serious: Yes (Life-Threatening, Hospitalization)
  Sender: FDA-Public Use
  Company Number: 2005029127

PATIENT
  Age: 68 Year
  Sex: Male
  Weight: 72 kg

DRUGS (2)
  1. BEXTRA [Suspect]
     Indication: CHEST INJURY
     Dosage: ORAL
     Route: 048
     Dates: start: 20041004, end: 20041005
  2. METFORMIN HCL [Concomitant]

REACTIONS (6)
  - ATRIAL FIBRILLATION [None]
  - CARDIAC FAILURE [None]
  - CATHETER RELATED INFECTION [None]
  - DISEASE RECURRENCE [None]
  - RENAL FAILURE ACUTE [None]
  - SEPSIS [None]
